FAERS Safety Report 10415378 (Version 1)
Quarter: 2014Q3

REPORT INFORMATION
  Report Type: Spontaneous
  Country: US (occurrence: None)
  Receive Date: 20140827
  Receipt Date: 20140827
  Transmission Date: 20150326
  Serious: No
  Sender: FDA-Public Use
  Company Number: None

PATIENT
  Age: 79 Year
  Sex: Male
  Weight: 85.9 kg

DRUGS (1)
  1. IPRATROPIUM [Suspect]
     Active Substance: IPRATROPIUM
     Indication: SINUSITIS
     Dosage: 1 PUFF (S), BID, NASAL
     Route: 045
     Dates: start: 20130722, end: 20140602

REACTIONS (1)
  - Urinary retention [None]

NARRATIVE: CASE EVENT DATE: 20140603
